FAERS Safety Report 14634198 (Version 3)
Quarter: 2018Q2

REPORT INFORMATION
  Report Type: Spontaneous
  Country: IL (occurrence: IL)
  Receive Date: 20180314
  Receipt Date: 20180621
  Transmission Date: 20180711
  Serious: Yes (Hospitalization, Other)
  Sender: FDA-Public Use
  Company Number: IL-AMGEN-ISRSP2018035042

PATIENT
  Age: 76 Year
  Sex: Female
  Weight: 70 kg

DRUGS (1)
  1. REPATHA [Suspect]
     Active Substance: EVOLOCUMAB
     Indication: HYPERLIPIDAEMIA
     Dosage: UNK
     Route: 065
     Dates: start: 201802, end: 201803

REACTIONS (5)
  - Blood pressure abnormal [Unknown]
  - Mitral valve calcification [Unknown]
  - Deep vein thrombosis [Unknown]
  - Retinal artery occlusion [Not Recovered/Not Resolved]
  - Aortic stenosis [Unknown]

NARRATIVE: CASE EVENT DATE: 2018
